FAERS Safety Report 14118534 (Version 1)
Quarter: 2017Q4

REPORT INFORMATION
  Report Type: Spontaneous
  Country: US (occurrence: US)
  Receive Date: 20171023
  Receipt Date: 20171023
  Transmission Date: 20180321
  Serious: No
  Sender: FDA-Public Use
  Company Number: US-ALLERGAN-1724825US

PATIENT
  Sex: Male
  Weight: 117.91 kg

DRUGS (4)
  1. LISINOPRIL. [Concomitant]
     Active Substance: LISINOPRIL
     Indication: HYPERTENSION
     Dosage: UNK UNK, UNKNOWN
     Route: 065
  2. LOVASTATIN. [Concomitant]
     Active Substance: LOVASTATIN
     Indication: BLOOD CHOLESTEROL INCREASED
     Dosage: UNK UNK, UNKNOWN
     Route: 065
  3. LINZESS [Suspect]
     Active Substance: LINACLOTIDE
     Indication: CONSTIPATION
     Dosage: 290 ?G, QD
     Route: 048
     Dates: start: 20170608
  4. BABY ASPIRIN [Concomitant]
     Active Substance: ASPIRIN
     Indication: SUPPLEMENTATION THERAPY
     Dosage: UNK UNK, UNKNOWN
     Route: 065

REACTIONS (1)
  - Drug ineffective [Unknown]
